FAERS Safety Report 7678570-X (Version None)
Quarter: 2011Q3

REPORT INFORMATION
  Report Type: 
  Country: None (occurrence: None)
  Receive Date: 20110811
  Receipt Date: 20110801
  Transmission Date: 20111222
  Serious: Yes (Hospitalization)
  Sender: FDA-Public Use
  Company Number: US-JNJFOC-20090303981

PATIENT
  Sex: Female
  Weight: 42.6 kg

DRUGS (3)
  1. REMICADE [Suspect]
     Indication: CROHN'S DISEASE
     Route: 042
     Dates: start: 20081216, end: 20090128
  2. FOLIC ACID [Concomitant]
  3. MULTI-VITAMINS [Concomitant]

REACTIONS (1)
  - ANAPHYLACTIC REACTION [None]
